FAERS Safety Report 7281511-0 (Version None)
Quarter: 2011Q1

REPORT INFORMATION
  Report Type: 
  Country: None (occurrence: None)
  Receive Date: 20110208
  Receipt Date: 20110202
  Transmission Date: 20110831
  Serious: Yes (Life-Threatening, Hospitalization, Disabling, Other)
  Sender: FDA-Public Use
  Company Number: FR-PFIZER INC-2011023632

PATIENT
  Age: 6 Year
  Sex: Male

DRUGS (5)
  1. HYDROCORTISONE [Suspect]
     Indication: HYPOPHYSECTOMY
     Dosage: 25 MG, 1X/DAY
     Route: 048
     Dates: start: 19980601
  2. GENOTONORM [Suspect]
     Indication: HYPOPITUITARISM
     Dosage: 12 IU, WEEKLY IN 5 INJECTIONS
     Route: 058
     Dates: start: 19990824, end: 19991222
  3. LEVOTHYROX [Concomitant]
     Indication: HYPOPHYSECTOMY
     Dosage: UNK
     Dates: start: 19980601
  4. MINIRIN ^AVENTIS PHARMA^ [Suspect]
     Indication: HYPOPHYSECTOMY
     Dosage: 0.1 MG, 2X/DAY
     Route: 048
     Dates: start: 19980601
  5. GENOTONORM [Suspect]
     Dosage: UNK

REACTIONS (7)
  - CRANIOPHARYNGIOMA [None]
  - HEMIPLEGIA [None]
  - FEBRILE CONVULSION [None]
  - CONVULSION [None]
  - NEOPLASM RECURRENCE [None]
  - BRAIN OEDEMA [None]
  - COMA [None]
